FAERS Safety Report 5888039-0 (Version None)
Quarter: 2008Q3

REPORT INFORMATION
  Report Type: 
  Country: None (occurrence: None)
  Receive Date: 20080918
  Receipt Date: 20080911
  Transmission Date: 20090109
  Serious: Yes (Other)
  Sender: FDA-Public Use
  Company Number: GB-ROCHE-586109

PATIENT
  Sex: Female
  Weight: 97.2 kg

DRUGS (8)
  1. ORLISTAT [Suspect]
     Indication: OBESITY
     Route: 048
     Dates: start: 20080708
  2. SEROXAT [Concomitant]
     Indication: DEPRESSION
     Route: 048
  3. CELECOXIB [Concomitant]
     Indication: ARTHRITIS
     Route: 048
  4. LEVOTHYROXINE SODIUM [Concomitant]
     Indication: HYPOTHYROIDISM
     Route: 048
  5. DIHYDROCODEINE BITARTRATE INJ [Concomitant]
     Indication: FIBROMYALGIA
     Route: 048
  6. GABAPENTIN [Concomitant]
     Indication: ARTHRITIS
     Route: 048
  7. CETIRIZINE HCL [Concomitant]
     Route: 048
  8. BECOTIDE [Concomitant]
     Indication: ASTHMA
     Dosage: REPORTED AS BECATIDE VENTOLIN, ROUTE IS BREATH ACTUALTED INHALATION.
     Route: 055

REACTIONS (1)
  - DIABETES MELLITUS [None]
